FAERS Safety Report 7654818-2 (Version None)
Quarter: 2011Q3

REPORT INFORMATION
  Report Type: 
  Country: None (occurrence: None)
  Receive Date: 20110803
  Receipt Date: 20110803
  Transmission Date: 20111222
  Serious: Yes (Other)
  Sender: FDA-Public Use
  Company Number: None

PATIENT
  Sex: Female
  Weight: 71.9 kg

DRUGS (2)
  1. VELCADE [Suspect]
     Indication: MULTIPLE MYELOMA
     Dosage: VELCADE 1.5MG/M2 D1, 8, 15, 22 SQ 7/12/11 - SQ; 7/18/11 - IV
     Route: 058
     Dates: start: 20110718
  2. VELCADE [Suspect]
     Indication: MULTIPLE MYELOMA
     Dosage: VELCADE 1.5MG/M2 D1, 8, 15, 22 SQ 7/12/11 - SQ; 7/18/11 - IV
     Route: 058
     Dates: start: 20110712

REACTIONS (3)
  - INJECTION SITE ERYTHEMA [None]
  - SKIN EXFOLIATION [None]
  - PRURITUS [None]
